FAERS Safety Report 8263148-X (Version None)
Quarter: 2012Q2

REPORT INFORMATION
  Report Type: 
  Country: None (occurrence: None)
  Receive Date: 20120405
  Receipt Date: 20120330
  Transmission Date: 20120825
  Serious: Yes (Other)
  Sender: FDA-Public Use
  Company Number: FR-PFIZER INC-2012082715

PATIENT
  Age: 4 Year
  Sex: Male

DRUGS (3)
  1. AMLODIPINE [Suspect]
     Indication: HYPERTENSION
     Dosage: 0.5 MG/KG/DAY
  2. TACROLIMUS [Interacting]
     Indication: RENAL TRANSPLANT
     Dosage: 2.5 MG, UNK
     Dates: start: 20091001
  3. ENALAPRIL [Concomitant]
     Indication: HYPERTENSION
     Dosage: 0.5 MG/KG/DAY

REACTIONS (5)
  - DRUG INTERACTION [None]
  - BLOOD CREATININE INCREASED [None]
  - DRUG CLEARANCE DECREASED [None]
  - HYPERTENSION [None]
  - NEPHROPATHY TOXIC [None]
